FAERS Safety Report 4962223-2 (Version None)
Quarter: 2006Q2

REPORT INFORMATION
  Report Type: 
  Country: None (occurrence: None)
  Receive Date: 20060403
  Receipt Date: 20060403
  Transmission Date: 20061013
  Serious: No
  Sender: FDA-Public Use
  Company Number: None

PATIENT
  Age: 42 Year
  Sex: Male
  Weight: 106.5953 kg

DRUGS (1)
  1. ZICAM ZINCUM GLUCONICUM 2X MARTIXX INITIATIVES. INC [Suspect]
     Indication: NASOPHARYNGITIS
     Dosage: 1 PUMP PER NOSTRIL ONCE NASAL
     Route: 045
     Dates: start: 20050625, end: 20050625

REACTIONS (2)
  - AGEUSIA [None]
  - ANOSMIA [None]
